FAERS Safety Report 18815680 (Version 1)
Quarter: 2021Q1

REPORT INFORMATION
  Report Type: Spontaneous
  Country: US (occurrence: US)
  Receive Date: 20210201
  Receipt Date: 20210201
  Transmission Date: 20210419
  Serious: No
  Sender: FDA-Public Use
  Company Number: None

PATIENT
  Age: 59 Year
  Sex: Female
  Weight: 79.38 kg

DRUGS (1)
  1. XELJANZ XR [Suspect]
     Active Substance: TOFACITINIB CITRATE
     Dosage: ?          OTHER DOSE:TAKE 1 TABLET;?
     Route: 048
     Dates: start: 202010

REACTIONS (2)
  - Therapy interrupted [None]
  - Illness [None]
